FAERS Safety Report 8171807-2 (Version None)
Quarter: 2012Q1

REPORT INFORMATION
  Report Type: 
  Country: None (occurrence: None)
  Receive Date: 20120228
  Receipt Date: 20120220
  Transmission Date: 20120608
  Serious: Yes (Other)
  Sender: FDA-Public Use
  Company Number: JP-GLAXOSMITHKLINE-B0782262A

PATIENT
  Age: 96 Year
  Sex: Female

DRUGS (1)
  1. PAXIL [Suspect]
     Indication: DEPRESSION
     Dosage: 10MG PER DAY
     Route: 048
     Dates: start: 20080701

REACTIONS (16)
  - PERSECUTORY DELUSION [None]
  - LOGORRHOEA [None]
  - PARAMNESIA [None]
  - ACTIVITIES OF DAILY LIVING IMPAIRED [None]
  - DISSOCIATION [None]
  - DELIRIUM [None]
  - SNORING [None]
  - DECREASED APPETITE [None]
  - DELUSION [None]
  - AMIMIA [None]
  - TREMOR [None]
  - SOMNOLENCE [None]
  - SOLILOQUY [None]
  - ASTHENIA [None]
  - COGNITIVE DISORDER [None]
  - DEPRESSED LEVEL OF CONSCIOUSNESS [None]
